FAERS Safety Report 4526254-9 (Version None)
Quarter: 2004Q4

REPORT INFORMATION
  Report Type: 
  Country: None (occurrence: None)
  Receive Date: 20041214
  Receipt Date: 20041201
  Transmission Date: 20050328
  Serious: Yes (Hospitalization)
  Sender: FDA-Public Use
  Company Number: JP-NOVOPROD-240856

PATIENT
  Age: 61 Year
  Sex: Male
  Weight: 43 kg

DRUGS (2)
  1. PENFILL N CHU [Suspect]
     Indication: INSULIN-REQUIRING TYPE II DIABETES MELLITUS
     Dosage: 4 IU, QD
     Route: 058
     Dates: start: 20030401, end: 20031201
  2. HUMALOG [Concomitant]
     Indication: INSULIN-REQUIRING TYPE II DIABETES MELLITUS
     Dosage: 6+4+4=14 IU/QD
     Route: 058
     Dates: start: 20030401, end: 20041201

REACTIONS (3)
  - HEMIPLEGIA [None]
  - HYPOGLYCAEMIC COMA [None]
  - TREATMENT NONCOMPLIANCE [None]
